FAERS Safety Report 6608845-4 (Version None)
Quarter: 2010Q1

REPORT INFORMATION
  Report Type: 
  Country: None (occurrence: None)
  Receive Date: 20100301
  Receipt Date: 20100218
  Transmission Date: 20100710
  Serious: Yes (Life-Threatening, Hospitalization, Other)
  Sender: FDA-Public Use
  Company Number: GB-PFIZER INC-2010006616

PATIENT
  Age: 61 Year
  Sex: Male
  Weight: 64 kg

DRUGS (12)
  1. CHAMPIX [Suspect]
     Indication: SMOKING CESSATION THERAPY
     Dosage: UNK
     Route: 048
     Dates: start: 20070320
  2. CHAMPIX [Suspect]
     Dosage: 1 MG, 2X/DAY
     Route: 048
     Dates: end: 20070727
  3. CHAMPIX [Suspect]
     Dosage: 1 MG, 1X/DAY
     Route: 048
     Dates: start: 20070727, end: 20071001
  4. CHAMPIX [Suspect]
     Dosage: 500 UG, 1X/DAY
     Route: 048
     Dates: start: 20071106
  5. SOLPADOL [Concomitant]
  6. IBUPROFEN [Concomitant]
  7. ACETYLSALICYLIC ACID [Concomitant]
  8. SIMVASTATIN [Concomitant]
  9. ZOLPIDEM [Concomitant]
  10. TRIFLUOPERAZINE [Concomitant]
  11. CIPROFLOXACIN [Concomitant]
  12. DOXYCYCLINE [Concomitant]

REACTIONS (2)
  - INTENTIONAL OVERDOSE [None]
  - SUICIDE ATTEMPT [None]
